FAERS Safety Report 16190694 (Version 1)
Quarter: 2019Q2

REPORT INFORMATION
  Report Type: Spontaneous
  Country: JP (occurrence: JP)
  Receive Date: 20190412
  Receipt Date: 20190412
  Transmission Date: 20190711
  Serious: Yes (Death)
  Sender: FDA-Public Use
  Company Number: JP-PFIZER INC-2018470580

PATIENT
  Age: 74 Year
  Sex: Male
  Weight: 45.5 kg

DRUGS (5)
  1. VFEND [Suspect]
     Active Substance: VORICONAZOLE
     Indication: BRONCHOPULMONARY ASPERGILLOSIS
     Dosage: 300 MG, 2X/DAY
     Route: 048
     Dates: start: 20181110, end: 20181110
  2. VFEND [Suspect]
     Active Substance: VORICONAZOLE
     Dosage: 200 MG, 2X/DAY
     Route: 048
     Dates: start: 20181111, end: 20181112
  3. VFEND [Suspect]
     Active Substance: VORICONAZOLE
     Dosage: 150 MG, 2X/DAY
     Route: 048
     Dates: start: 20181115
  4. VFEND [Suspect]
     Active Substance: VORICONAZOLE
     Dosage: 100 MG, 2X/DAY
     Route: 048
     Dates: start: 20181116, end: 20181117
  5. ENALAPRIL MALEATE. [Concomitant]
     Active Substance: ENALAPRIL MALEATE
     Dosage: 5 MG, DAILY
     Route: 048

REACTIONS (3)
  - Visual impairment [Recovering/Resolving]
  - Drug ineffective [Fatal]
  - Diplopia [Recovering/Resolving]

NARRATIVE: CASE EVENT DATE: 20181112
